FAERS Safety Report 9254235 (Version 1)
Quarter: 2013Q2

REPORT INFORMATION
  Report Type: Spontaneous
  Country: US (occurrence: None)
  Receive Date: 20130416
  Receipt Date: 20130416
  Transmission Date: 20140414
  Serious: Yes (Hospitalization)
  Sender: FDA-Public Use
  Company Number: A13-034

PATIENT
  Age: 31 Year
  Sex: Male
  Weight: 95 kg

DRUGS (2)
  1. POLLENS - WEEDS, DOCK/SORREL MIX [Suspect]
     Indication: HYPERSENSITIVITY
     Dosage: 0.20CC; ONCE. 057
     Dates: start: 20130227
  2. CELEXA [Concomitant]

REACTIONS (6)
  - Erythema [None]
  - Flushing [None]
  - Cough [None]
  - Dyspnoea [None]
  - Eye swelling [None]
  - Lip swelling [None]
